FAERS Safety Report 10169180 (Version 1)
Quarter: 2014Q2

REPORT INFORMATION
  Report Type: Spontaneous
  Country: US (occurrence: None)
  Receive Date: 20140509
  Receipt Date: 20140509
  Transmission Date: 20141212
  Serious: Yes (Other)
  Sender: FDA-Public Use
  Company Number: UTC-048281

PATIENT
  Age: 64 Year
  Sex: Female

DRUGS (4)
  1. REMODULIN [Suspect]
     Indication: COR PULMONALE CHRONIC
     Dosage: 26.64 UG/KG (0.0185 UG/KG,1 IN 1 MIN),SUBCUTANEOUS
     Route: 058
     Dates: start: 20131220
  2. COUMADIN (WARFARIN SODIUM) [Concomitant]
  3. LETAIRIS (AMBRISENTAN) [Concomitant]
  4. ADCIRCA (TADALAFIL) [Concomitant]

REACTIONS (2)
  - Confusional state [None]
  - Palpitations [None]
